FAERS Safety Report 5586490-X (Version None)
Quarter: 2007Q4

REPORT INFORMATION
  Report Type: 
  Country: None (occurrence: None)
  Receive Date: 20071205
  Receipt Date: 20070315
  Transmission Date: 20080405
  Serious: Yes (Other)
  Sender: FDA-Public Use
  Company Number: HQWYE436222MAR07

PATIENT
  Sex: Female
  Weight: 50.85 kg

DRUGS (1)
  1. EFFEXOR XR [Suspect]
     Indication: DEPRESSION
     Dosage: 300 MG 1X PER 1 DAY, ORAL
     Route: 048
     Dates: start: 19940101

REACTIONS (1)
  - DRUG EXPOSURE DURING PREGNANCY [None]
